FAERS Safety Report 14418011 (Version 2)
Quarter: 2022Q2

REPORT INFORMATION
  Report Type: Spontaneous
  Country: US (occurrence: US)
  Receive Date: 20180122
  Receipt Date: 20220610
  Transmission Date: 20220720
  Serious: No
  Sender: FDA-Public Use
  Company Number: US-INTERCEPT-PMOCA2017001066

PATIENT
  Age: 55 Year
  Sex: Female
  Weight: 77.836 kg

DRUGS (18)
  1. OCALIVA [Suspect]
     Active Substance: OBETICHOLIC ACID
     Indication: Primary biliary cholangitis
     Dosage: 5 MILLIGRAM, QD
     Route: 048
     Dates: start: 20170417, end: 201710
  2. OCALIVA [Suspect]
     Active Substance: OBETICHOLIC ACID
     Dosage: 5 MILLIGRAM, QD
     Route: 048
     Dates: start: 202105
  3. URSO [Concomitant]
     Active Substance: URSODIOL
     Indication: Primary biliary cholangitis
     Dosage: 500 MILLIGRAM, BID
     Route: 048
     Dates: start: 20200623
  4. NORCO [Concomitant]
     Active Substance: ACETAMINOPHEN\HYDROCODONE BITARTRATE
     Indication: Pain
     Dosage: 1 TABLET (10MG-325MG), EVERY 4 - 6 HOURS, PRN
     Route: 048
  5. VITAMINS [Concomitant]
     Active Substance: VITAMINS
     Dosage: 1 DOSAGE FORM, QD
     Route: 048
     Dates: start: 20200623
  6. PANTOPRAZOLE [Concomitant]
     Active Substance: PANTOPRAZOLE
     Dosage: 40 MILLIGRAM, QD
     Route: 048
  7. ATIVAN [Concomitant]
     Active Substance: LORAZEPAM
  8. INDERAL XL [Concomitant]
     Active Substance: PROPRANOLOL HYDROCHLORIDE
     Dosage: 1 DOSAGE FORM, QHS
     Route: 048
     Dates: start: 20200623
  9. HYDROXYZINE HYDROCHLORIDE [Concomitant]
     Active Substance: HYDROXYZINE HYDROCHLORIDE
     Indication: Pruritus
     Dosage: 25 MILLIGRAM, QID
     Route: 048
     Dates: start: 20200623
  10. VITAMINS NOS [Concomitant]
     Active Substance: VITAMINS
  11. VITAMIN B12 [Concomitant]
     Active Substance: CYANOCOBALAMIN
     Dosage: 1000 MICROGRAM, QD
     Route: 048
  12. RIZATRIPTAN [Concomitant]
     Active Substance: RIZATRIPTAN
     Dosage: 10 MG, QD, MAY REPEAT AT 2 HOUR INTERVALS; DO NOT EXCEED 30 MG IN 24 HOURS
     Route: 048
  13. LIBRAX [Concomitant]
     Active Substance: CHLORDIAZEPOXIDE HYDROCHLORIDE\CLIDINIUM BROMIDE
  14. BIOTIN [Concomitant]
     Active Substance: BIOTIN
     Dosage: 1 DOSAGE FORM, QD
     Route: 048
     Dates: start: 20200623
  15. ACYCLOVIR [Concomitant]
     Active Substance: ACYCLOVIR
     Dosage: UNK, EVERY 3 HOURS 6 TIMES PER DAY TO THE AFFECTED AREAS
     Route: 061
  16. SOMA [Concomitant]
     Active Substance: CARISOPRODOL
     Dosage: 0.5 DOSAGE FORM, QHS
     Route: 048
  17. QUESTRAN [Concomitant]
     Active Substance: CHOLESTYRAMINE
     Dosage: TAKE 1 SCOOP EVERY DAY DISSOLVED IN 2 TO 6 OUNCES OF WATER
     Route: 048
  18. HYDROCODONE BITARTRATE AND ACETAMINOPHEN [Concomitant]
     Active Substance: ACETAMINOPHEN\HYDROCODONE BITARTRATE
     Dosage: 15 MILLILITER (10MG-325MG), Q4H, AS NEEDED
     Route: 048

REACTIONS (6)
  - Decreased activity [Unknown]
  - Abdominal distension [Unknown]
  - Central obesity [Not Recovered/Not Resolved]
  - Dizziness [Recovered/Resolved]
  - Inability to afford medication [Recovered/Resolved]
  - Therapy interrupted [Recovered/Resolved]

NARRATIVE: CASE EVENT DATE: 20170901
